FAERS Safety Report 6604784-3 (Version None)
Quarter: 2010Q1

REPORT INFORMATION
  Report Type: 
  Country: None (occurrence: None)
  Receive Date: 20100226
  Receipt Date: 20100126
  Transmission Date: 20100710
  Serious: No
  Sender: FDA-Public Use
  Company Number: US-BRISTOL-MYERS SQUIBB COMPANY-14949309

PATIENT
  Sex: Male

DRUGS (4)
  1. ONGLYZA [Suspect]
     Indication: DIABETES MELLITUS
  2. METFORMIN HYDROCHLORIDE [Concomitant]
  3. GLYBURIDE [Concomitant]
  4. SULFONYLUREA [Concomitant]

REACTIONS (1)
  - GINGIVAL DISORDER [None]
